FAERS Safety Report 8618702-X (Version None)
Quarter: 2012Q3

REPORT INFORMATION
  Report Type: 
  Country: None (occurrence: None)
  Receive Date: 20120824
  Receipt Date: 20120816
  Transmission Date: 20120928
  Serious: Yes (Hospitalization)
  Sender: FDA-Public Use
  Company Number: DE-UCBSA-063162

PATIENT
  Age: 57 Year
  Sex: Female

DRUGS (8)
  1. CYCLOSPORINE [Concomitant]
     Indication: PSORIATIC ARTHROPATHY
     Dosage: SINGLE DOSE:50, DAILY DOSE:100
     Route: 048
     Dates: start: 20111201
  2. LEVOTHYROXINE SODIUM [Concomitant]
     Dosage: SINGLE DOSE:50, DAILY DOSE:50
     Route: 048
  3. CIMZIA [Suspect]
     Indication: PSORIATIC ARTHROPATHY
     Route: 058
     Dates: start: 20120125, end: 20120718
  4. PREDNISONE TAB [Concomitant]
     Indication: PSORIATIC ARTHROPATHY
     Dosage: SINGLE DOSE: 10, DAILY DOSE: 10
     Route: 048
     Dates: start: 20080101
  5. MARCUMAR [Concomitant]
     Indication: PULMONARY EMBOLISM
     Dosage: ACC TO INR
     Route: 048
     Dates: start: 20110901
  6. CANDERSATAN [Concomitant]
     Indication: HYPERTENSION
     Dosage: SINGLE DOSE:8, DAILY DOSE: 8
     Route: 048
  7. PANTOPRAZOLE [Concomitant]
     Indication: GASTROOESOPHAGEAL REFLUX DISEASE
     Dosage: SINGLE DOSE:40, TOTAL DAILY DOSE:40
     Route: 048
  8. PREDNISONE TAB [Concomitant]
     Dosage: 50 MG

REACTIONS (3)
  - PERICARDITIS [None]
  - LEFT VENTRICULAR END-DIASTOLIC PRESSURE INCREASED [None]
  - PERICARDIAL EFFUSION [None]
